FAERS Safety Report 10966414 (Version 6)
Quarter: 2016Q1

REPORT INFORMATION
  Report Type: Spontaneous
  Country: US (occurrence: US)
  Receive Date: 20150330
  Receipt Date: 20160115
  Transmission Date: 20160525
  Serious: Yes (Other)
  Sender: FDA-Public Use
  Company Number: US-PFIZER INC-2015107257

PATIENT
  Age: 83 Year
  Sex: Female

DRUGS (14)
  1. TRAZODONE [Concomitant]
     Active Substance: TRAZODONE HYDROCHLORIDE
     Dosage: 50 MG 1-2 TAB(S), AS NEEDED (AT BEDTIME)
     Route: 048
  2. HYDROCHLOROTHIAZIDE. [Concomitant]
     Active Substance: HYDROCHLOROTHIAZIDE
     Dosage: 12.5 MG, DAILY
     Route: 048
  3. METFORMIN [Concomitant]
     Active Substance: METFORMIN HYDROCHLORIDE
     Dosage: 500 MG, DAILY
     Route: 048
  4. NORCO [Concomitant]
     Active Substance: ACETAMINOPHEN\HYDROCODONE BITARTRATE
     Dosage: (HYDROCODONE BITARTRATE 325MG , PARACETAMOL 7.5MG), 2X/DAY
     Route: 048
  5. FLUTICASONE [Concomitant]
     Active Substance: FLUTICASONE\FLUTICASONE PROPIONATE
     Dosage: 100 UG, DAILY (50MCG/INH SPRAY AT 2 SPRAYS EVERY DAY)
     Route: 045
  6. NITROSTAT [Concomitant]
     Active Substance: NITROGLYCERIN
     Dosage: 0.4 MG, AS NEEDED
     Route: 060
  7. BENAZEPRIL-HYDROCHLORTHIAZIDE [Concomitant]
     Dosage: (BENAZEPRIL 20 MG-HYDROCHLORTHIAZIDE 12.5 MG), DAILY
     Route: 048
  8. CLOPIDOGREL [Concomitant]
     Active Substance: CLOPIDOGREL BISULFATE
     Dosage: 75 MG, DAILY
     Route: 048
  9. FLUVIRINE [Concomitant]
     Dosage: UNK
     Route: 030
     Dates: start: 2015, end: 2016
  10. KETOROLAC [Concomitant]
     Active Substance: KETOROLAC\KETOROLAC TROMETHAMINE
     Dosage: 30 MG/ML, UNK
  11. LYRICA [Suspect]
     Active Substance: PREGABALIN
     Dosage: 75 MG, 3X/DAY
     Route: 048
  12. TRIAMCINOLONE [Concomitant]
     Active Substance: TRIAMCINOLONE
     Dosage: 0.1 %, 4X/DAY
     Route: 061
  13. CRESTOR [Concomitant]
     Active Substance: ROSUVASTATIN CALCIUM
     Dosage: 40 MG, 1X/DAY BEDTIME
     Route: 048
  14. DORZOLAMIDE [Concomitant]
     Active Substance: DORZOLAMIDE
     Dosage: 1 GTT, 3X/DAY (2% SOLUTION)
     Route: 047

REACTIONS (13)
  - Cardiac disorder [Unknown]
  - Loss of consciousness [Unknown]
  - General physical condition abnormal [Unknown]
  - Nerve injury [Unknown]
  - Visual impairment [Unknown]
  - Malaise [Unknown]
  - Memory impairment [Unknown]
  - Glaucoma [Unknown]
  - Nervousness [Unknown]
  - Activities of daily living impaired [Unknown]
  - Heart rate decreased [Unknown]
  - Pain [Unknown]
  - Impaired work ability [Unknown]
